FAERS Safety Report 16698203 (Version 2)
Quarter: 2019Q3

REPORT INFORMATION
  Report Type: Spontaneous
  Country: US (occurrence: US)
  Receive Date: 20190813
  Receipt Date: 20190821
  Transmission Date: 20191004
  Serious: Yes (Other)
  Sender: FDA-Public Use
  Company Number: US-ROCHE-2368018

PATIENT
  Age: 77 Year
  Sex: Male
  Weight: 136.2 kg

DRUGS (2)
  1. XOLAIR [Suspect]
     Active Substance: OMALIZUMAB
     Indication: ASTHMA
     Dosage: INTRAMUSCULAR
     Route: 065
     Dates: start: 20190718
  2. TRELEGY ELLIPTA [Concomitant]
     Active Substance: FLUTICASONE FUROATE\UMECLIDINIUM BROMIDE\VILANTEROL TRIFENATATE
     Route: 065
     Dates: start: 201811

REACTIONS (2)
  - Hypoaesthesia [Recovering/Resolving]
  - Guillain-Barre syndrome [Unknown]

NARRATIVE: CASE EVENT DATE: 20190721
